FAERS Safety Report 19934173 (Version 1)
Quarter: 2021Q4

REPORT INFORMATION
  Report Type: Spontaneous
  Country: ZA (occurrence: ZA)
  Receive Date: 20211008
  Receipt Date: 20211008
  Transmission Date: 20220303
  Serious: Yes (Other)
  Sender: FDA-Public Use
  Company Number: ZA-BAYER-2021A222672

PATIENT
  Sex: Female

DRUGS (2)
  1. MIRENA [Suspect]
     Active Substance: LEVONORGESTREL
     Dosage: 20 ?G, CONT
     Route: 015
  2. OESTRADIOL [ESTRADIOL BENZOATE] [Concomitant]
     Indication: Menopausal symptoms
     Dosage: 2 MG
     Route: 048

REACTIONS (2)
  - Postmenopausal haemorrhage [None]
  - Intermenstrual bleeding [None]
